FAERS Safety Report 6023731-9 (Version None)
Quarter: 2008Q4

REPORT INFORMATION
  Report Type: 
  Country: None (occurrence: None)
  Receive Date: 20081230
  Receipt Date: 20081219
  Transmission Date: 20090506
  Serious: Yes (Other)
  Sender: FDA-Public Use
  Company Number: JP-ASTRAZENECA-2008AP09713

PATIENT
  Age: 60 Year
  Sex: Male

DRUGS (5)
  1. MEROPEN [Suspect]
     Indication: PULMONARY OEDEMA
     Route: 042
  2. AMBISOME [Suspect]
     Dates: start: 20081203
  3. COTRIM [Suspect]
     Route: 048
  4. MINOCYCLINE HCL [Suspect]
  5. ADRENAL HORMONE PREPARATIONS [Suspect]

REACTIONS (1)
  - HYPONATRAEMIA [None]
